FAERS Safety Report 5235700-7 (Version None)
Quarter: 2007Q1

REPORT INFORMATION
  Report Type: 
  Country: None (occurrence: None)
  Receive Date: 20061208
  Receipt Date: 20060712
  Transmission Date: 20070707
  Serious: Yes (Other)
  Sender: FDA-Public Use
  Company Number: 2006UW14370

PATIENT
  Age: 62 Year
  Sex: Female
  Weight: 70.306 kg

DRUGS (10)
  1. CRESTOR [Suspect]
     Indication: BLOOD CHOLESTEROL INCREASED
     Dosage: 20 MG QD PO
     Route: 048
     Dates: start: 20060626, end: 20060703
  2. ZOCOR [Concomitant]
  3. ZETIA [Concomitant]
  4. VYTORIN [Concomitant]
  5. PLAVIX [Concomitant]
  6. ASPIRIN [Concomitant]
  7. TOPROL-XL [Concomitant]
  8. ALTACE [Concomitant]
  9. NEXIUM ORAL [Concomitant]
  10. NEW PHASE [Concomitant]

REACTIONS (2)
  - ABASIA [None]
  - MUSCLE SPASMS [None]
